FAERS Safety Report 9431916 (Version 1)
Quarter: 2013Q3

REPORT INFORMATION
  Report Type: Spontaneous
  Country: IT (occurrence: IT)
  Receive Date: 20130731
  Receipt Date: 20130731
  Transmission Date: 20140515
  Serious: Yes (Disabling)
  Sender: FDA-Public Use
  Company Number: PHHY2013IT080608

PATIENT
  Sex: Female

DRUGS (6)
  1. ZOMETA [Suspect]
     Indication: METASTASES TO BONE
     Dosage: 4 MG, CYCLIC
     Route: 042
     Dates: start: 20110217, end: 20130103
  2. LANSOPRAZOLE [Concomitant]
     Dosage: UNK UKN, UNK
     Dates: start: 2011
  3. IRESSA [Concomitant]
     Dosage: 1 DF, DAILY
     Dates: start: 201104
  4. ACTRAPID HM MC [Concomitant]
     Dosage: UNK UKN, UNK
     Dates: start: 2011
  5. DIBASE [Concomitant]
     Dosage: 20 DRP, WEEKLY
     Route: 048
     Dates: start: 20110222
  6. SOLDESAM [Concomitant]
     Dosage: 32 DRP, UNK
     Route: 048

REACTIONS (4)
  - Osteonecrosis of jaw [Recovering/Resolving]
  - Exposed bone in jaw [Unknown]
  - Abscess [Unknown]
  - Facial pain [Unknown]
